FAERS Safety Report 8509148-3 (Version None)
Quarter: 2012Q3

REPORT INFORMATION
  Report Type: 
  Country: None (occurrence: None)
  Receive Date: 20120713
  Receipt Date: 20120703
  Transmission Date: 20120928
  Serious: Yes (Hospitalization)
  Sender: FDA-Public Use
  Company Number: FR-GLAXOSMITHKLINE-B0812054A

PATIENT
  Sex: Female

DRUGS (3)
  1. ACETYLCYSTEINE [Concomitant]
     Indication: INFLUENZA
  2. CEFUROXIME [Suspect]
     Indication: INFLUENZA
     Dosage: 1TAB SINGLE DOSE
     Route: 048
     Dates: start: 20101127, end: 20101127
  3. ACETAMINOPHEN [Concomitant]
     Indication: INFLUENZA

REACTIONS (10)
  - HYPOTENSION [None]
  - BUNDLE BRANCH BLOCK RIGHT [None]
  - ANAPHYLACTIC SHOCK [None]
  - PALMAR ERYTHEMA [None]
  - ABDOMINAL PAIN [None]
  - MALAISE [None]
  - PRURITUS [None]
  - URTICARIA [None]
  - FACE OEDEMA [None]
  - PRURITUS GENERALISED [None]
